FAERS Safety Report 25539990 (Version 1)
Quarter: 2025Q3

REPORT INFORMATION
  Report Type: Spontaneous
  Country: US (occurrence: None)
  Receive Date: 20250710
  Receipt Date: 20250710
  Transmission Date: 20251021
  Serious: Yes (Hospitalization)
  Sender: FDA-CTU
  Company Number: None

PATIENT
  Age: 75 Year
  Sex: Female

DRUGS (18)
  1. MEKINIST [Suspect]
     Active Substance: TRAMETINIB DIMETHYL SULFOXIDE
     Indication: Ovarian cancer
     Dosage: FREQUENCY : DAILY;?
     Route: 048
     Dates: start: 20250520, end: 20250625
  2. TAFINLAR [Suspect]
     Active Substance: DABRAFENIB MESYLATE
     Indication: Ovarian cancer
     Dosage: FREQUENCY : TWICE A DAY;?
     Route: 048
     Dates: start: 20250520, end: 20250625
  3. VITAMIN B12 [Concomitant]
     Active Substance: CYANOCOBALAMIN
  4. ONDANSETRON [Concomitant]
     Active Substance: ONDANSETRON
  5. PROCHLORPERAZINE [Concomitant]
     Active Substance: PROCHLORPERAZINE
  6. VITAMIN D [Concomitant]
     Active Substance: VITAMIN D NOS
  7. ALBUTEROL [Concomitant]
     Active Substance: ALBUTEROL
  8. CITALOPRAM [Concomitant]
     Active Substance: CITALOPRAM
  9. FAMOTIDINE [Concomitant]
     Active Substance: FAMOTIDINE
  10. FLUTICASONE NASAL SP [Concomitant]
  11. IRBESARTAN [Concomitant]
     Active Substance: IRBESARTAN
  12. MELATONIN [Concomitant]
     Active Substance: MELATONIN
  13. METFORMIN [Concomitant]
     Active Substance: METFORMIN HYDROCHLORIDE
  14. METOPROLOL SUCCINATE [Concomitant]
     Active Substance: METOPROLOL SUCCINATE
  15. NYSTATIN [Concomitant]
     Active Substance: NYSTATIN
  16. PREDNISONE [Concomitant]
     Active Substance: PREDNISONE
  17. PROLIA PF SYR [Concomitant]
  18. ROSUVASTATIN [Concomitant]
     Active Substance: ROSUVASTATIN

REACTIONS (4)
  - Headache [None]
  - Vomiting [None]
  - Diarrhoea [None]
  - Stomatitis [None]

NARRATIVE: CASE EVENT DATE: 20250625
